FAERS Safety Report 14080128 (Version 2)
Quarter: 2017Q4

REPORT INFORMATION
  Report Type: Spontaneous
  Country: US (occurrence: AU)
  Receive Date: 20171012
  Receipt Date: 20171018
  Transmission Date: 20180321
  Serious: Yes (Death, Hospitalization, Other)
  Sender: FDA-Public Use
  Company Number: US-JNJFOC-20171009902

PATIENT
  Age: 76 Year
  Sex: Male
  Weight: 98.5 kg

DRUGS (13)
  1. ASPIRIN. [Concomitant]
     Active Substance: ASPIRIN
     Route: 048
  2. VALSARTAN. [Concomitant]
     Active Substance: VALSARTAN
     Route: 048
     Dates: start: 2014
  3. AMLODIPINE [Concomitant]
     Active Substance: AMLODIPINE BESYLATE
     Route: 048
  4. NICORANDIL [Concomitant]
     Active Substance: NICORANDIL
     Route: 048
     Dates: start: 2010
  5. INDOMETHACIN. [Concomitant]
     Active Substance: INDOMETHACIN
     Route: 048
  6. FUROSEMIDE. [Concomitant]
     Active Substance: FUROSEMIDE
     Indication: CARDIOVASCULAR DISORDER
     Route: 065
     Dates: start: 20170510
  7. ATENOLOL. [Concomitant]
     Active Substance: ATENOLOL
     Route: 048
     Dates: start: 20170510
  8. ATENOLOL. [Concomitant]
     Active Substance: ATENOLOL
     Route: 048
     Dates: start: 2014, end: 20170510
  9. PERHEXILINE MALEATE [Concomitant]
     Active Substance: PERHEXILINE MALEATE
     Route: 048
     Dates: start: 2013
  10. NITROLINGUAL [Concomitant]
     Active Substance: NITROGLYCERIN
     Route: 060
     Dates: start: 2010
  11. APIXABAN [Concomitant]
     Active Substance: APIXABAN
     Route: 048
  12. XARELTO [Suspect]
     Active Substance: RIVAROXABAN
     Indication: PRODUCT USED FOR UNKNOWN INDICATION
     Route: 048
     Dates: end: 201709
  13. MONODUR [Concomitant]
     Active Substance: ISOSORBIDE MONONITRATE
     Route: 048
     Dates: start: 2014

REACTIONS (3)
  - Electrocardiogram QT prolonged [Unknown]
  - Musculoskeletal chest pain [Recovering/Resolving]
  - Haemorrhagic stroke [Fatal]

NARRATIVE: CASE EVENT DATE: 20170208
